FAERS Safety Report 23518686 (Version 1)
Quarter: 2024Q1

REPORT INFORMATION
  Report Type: Spontaneous
  Country: US (occurrence: None)
  Receive Date: 20240213
  Receipt Date: 20240213
  Transmission Date: 20240410
  Serious: Yes (Life-Threatening)
  Sender: FDA-Public Use
  Company Number: None

PATIENT
  Sex: Male

DRUGS (7)
  1. LITHIUM [Suspect]
     Active Substance: LITHIUM
     Dosage: FREQUENCY : 3 TIMES A DAY;?
     Route: 048
     Dates: start: 20240125
  2. HALDOL [Suspect]
     Active Substance: HALOPERIDOL
  3. ABILIFY [Suspect]
     Active Substance: ARIPIPRAZOLE
  4. VITAMINS [Concomitant]
     Active Substance: VITAMINS
  5. ABUTOLOL [Concomitant]
  6. SIMVASTATIN [Concomitant]
     Active Substance: SIMVASTATIN
  7. HYDROCHLOROTHIAZIDE [Concomitant]
     Active Substance: HYDROCHLOROTHIAZIDE

REACTIONS (2)
  - Heart rate increased [None]
  - Myocardial infarction [None]
